FAERS Safety Report 7561455-7 (Version None)
Quarter: 2011Q2

REPORT INFORMATION
  Report Type: 
  Country: None (occurrence: None)
  Receive Date: 20110621
  Receipt Date: 20100506
  Transmission Date: 20111010
  Serious: No
  Sender: FDA-Public Use
  Company Number: US-ASTRAZENECA-2010SE17258

PATIENT
  Age: 5 Year
  Sex: Male

DRUGS (4)
  1. PULMICORT [Suspect]
     Route: 055
  2. SINGULAIR [Concomitant]
  3. ALBUTEROL SULFATE AUTOHALER [Concomitant]
  4. PULMICORT [Suspect]
     Indication: ASTHMA
     Route: 055
     Dates: start: 20090811

REACTIONS (6)
  - NASOPHARYNGITIS [None]
  - PYREXIA [None]
  - UPPER RESPIRATORY TRACT INFECTION [None]
  - COUGH [None]
  - DRUG INEFFECTIVE [None]
  - ASTHMA [None]
